FAERS Safety Report 5822364-4 (Version None)
Quarter: 2008Q3

REPORT INFORMATION
  Report Type: 
  Country: None (occurrence: None)
  Receive Date: 20080722
  Receipt Date: 20080714
  Transmission Date: 20090109
  Serious: Yes (Other)
  Sender: FDA-Public Use
  Company Number: 2008JP001858

PATIENT
  Age: 87 Year
  Sex: Female
  Weight: 33 kg

DRUGS (1)
  1. VESICARE [Suspect]
     Indication: HYPERTONIC BLADDER
     Dosage: 5 MG, D, ORAL
     Route: 048
     Dates: start: 20070319, end: 20070820

REACTIONS (4)
  - COGNITIVE DISORDER [None]
  - HEADACHE [None]
  - OROPHARYNGEAL PAIN [None]
  - UPPER RESPIRATORY TRACT INFLAMMATION [None]
